FAERS Safety Report 6217785-4 (Version None)
Quarter: 2009Q2

REPORT INFORMATION
  Report Type: 
  Country: None (occurrence: None)
  Receive Date: 20090608
  Receipt Date: 20090601
  Transmission Date: 20091009
  Serious: Yes (Other)
  Sender: FDA-Public Use
  Company Number: GR-JNJFOC-20090600707

PATIENT
  Sex: Male

DRUGS (1)
  1. TOPAMAC [Suspect]
     Indication: EPILEPSY
     Route: 048

REACTIONS (2)
  - CONVULSION [None]
  - EXPIRED DRUG ADMINISTERED [None]
